FAERS Safety Report 4597149-X (Version None)
Quarter: 2005Q1

REPORT INFORMATION
  Report Type: 
  Country: None (occurrence: None)
  Receive Date: 20050302
  Receipt Date: 20050208
  Transmission Date: 20050727
  Serious: Yes (Other)
  Sender: FDA-Public Use
  Company Number: 2004046834

PATIENT
  Age: 31 Year
  Sex: Female
  Weight: 62.1428 kg

DRUGS (2)
  1. LISTERINE ANTISEPTIC MOUTHWASH [Suspect]
     Indication: DENTAL CARE
     Dosage: USED IT TWICE, ORAL TOPICAL
     Route: 061
     Dates: start: 20040712
  2. PRENATAL VITAMINS [Concomitant]

REACTIONS (2)
  - ABORTION SPONTANEOUS [None]
  - DRUG EXPOSURE DURING PREGNANCY [None]
